FAERS Safety Report 23158294 (Version 1)
Quarter: 2023Q4

REPORT INFORMATION
  Report Type: Other
  Country: DE (occurrence: DE)
  Receive Date: 20231108
  Receipt Date: 20231108
  Transmission Date: 20240110
  Serious: Yes (Other)
  Sender: FDA-Public Use
  Company Number: DE-MACLEODS PHARMACEUTICALS US LTD-MAC2023044157

PATIENT

DRUGS (4)
  1. ESCITALOPRAM [Suspect]
     Active Substance: ESCITALOPRAM OXALATE
     Indication: Depression
     Dosage: 20 MILLIGRAM, QD (0. - 39.4. GESTATIONAL WEEK) (20 [MG/D ]/ DOSAGE 20 MG/D, DISCONTINUED AT GW 5.6,
     Route: 064
     Dates: start: 20220425, end: 20230127
  2. ESCITALOPRAM [Suspect]
     Active Substance: ESCITALOPRAM OXALATE
     Dosage: 10 MILLIGRAM, QD (0. - 39.4. GESTATIONAL WEEK) (20 [MG/D ]/ DOSAGE 20 MG/D, DISCONTINUED AT GW 5.6,
     Route: 064
  3. COMIRNATY (TOZINAMERAN) [Suspect]
     Active Substance: TOZINAMERAN
     Indication: COVID-19 immunisation
     Dosage: 15 MICROGRAM, QD (27.3. - 27.3. GESTATIONAL WEEK) PRIOR TO THIRD TRIMESTER
     Route: 064
     Dates: start: 20221103, end: 20221103
  4. BOOSTRIX [Suspect]
     Active Substance: TETANUS TOXOID, REDUCED DIPHTHERIA TOXOID AND ACELLULAR PERTUSSIS VACCINE, ADSORBED ANTIGENS
     Indication: Immunisation
     Dosage: UNK (31.3. - 31.3. GESTATIONAL WEEK) PRIOR TO THIRD TRIMESTER
     Route: 064
     Dates: start: 20221201, end: 20221201

REACTIONS (3)
  - Microcephaly [Recovered/Resolved]
  - Small for dates baby [Recovered/Resolved]
  - Foetal exposure during pregnancy [Unknown]
